FAERS Safety Report 7859163-8 (Version None)
Quarter: 2011Q4

REPORT INFORMATION
  Report Type: 
  Country: None (occurrence: None)
  Receive Date: 20111027
  Receipt Date: 20111024
  Transmission Date: 20120403
  Serious: Yes (Death, Other)
  Sender: FDA-Public Use
  Company Number: PHHY2011NL90021

PATIENT
  Sex: Female

DRUGS (14)
  1. SELOKEEN [Concomitant]
  2. HORMONES NOS [Concomitant]
  3. OXYCODONE HCL [Concomitant]
     Dosage: 5 MG, PRN
  4. TOLBUTAMIDE [Concomitant]
     Dosage: 500 UNK, BID
  5. OXYCONTIN [Concomitant]
  6. MELOXICAM [Concomitant]
  7. ZOMETA [Suspect]
     Dosage: 4 MG/5 ML, EVERY 4 WEEKS
     Dates: start: 20110919
  8. HYDROCHLOROTHIAZIDE [Concomitant]
  9. METOCLOPRAMIDE [Concomitant]
     Dosage: 10 MG, PRN
  10. THEOPHYLLINE [Concomitant]
  11. ZOMETA [Suspect]
     Indication: HYPERCALCAEMIA
     Dosage: 4 MG/5 ML, EVERY 4 WEEKS
  12. METFORMIN HCL [Concomitant]
     Dosage: 500 UNK, TID
  13. OMEPRAZOLE [Concomitant]
  14. PHENOTHIAZINE [Concomitant]

REACTIONS (9)
  - DEATH [None]
  - GENERAL PHYSICAL HEALTH DETERIORATION [None]
  - MOBILITY DECREASED [None]
  - HYPERCALCAEMIA [None]
  - NEOPLASM MALIGNANT [None]
  - BLOOD CREATININE INCREASED [None]
  - NEOPLASM PROGRESSION [None]
  - BLOOD ALBUMIN INCREASED [None]
  - CARBOHYDRATE ANTIGEN 15-3 INCREASED [None]
